FAERS Safety Report 26005434 (Version 1)
Quarter: 2025Q4

REPORT INFORMATION
  Report Type: Spontaneous
  Country: CN (occurrence: CN)
  Receive Date: 20251106
  Receipt Date: 20251106
  Transmission Date: 20260119
  Serious: Yes (Other)
  Sender: BAXTER
  Company Number: None

PATIENT
  Age: 53 Year
  Sex: Female
  Weight: 72 kg

DRUGS (2)
  1. CYCLOPHOSPHAMIDE [Suspect]
     Active Substance: CYCLOPHOSPHAMIDE
     Indication: Invasive breast carcinoma
     Dosage: 0.9 G, QD, IVGTT D1
     Route: 041
     Dates: start: 20251028, end: 20251028
  2. EPIRUBICIN HYDROCHLORIDE [Suspect]
     Active Substance: EPIRUBICIN HYDROCHLORIDE
     Indication: Invasive breast carcinoma
     Dosage: 150 MG, QD, IVGTT D1
     Route: 041
     Dates: start: 20251028, end: 20251028

REACTIONS (4)
  - Depressed level of consciousness [Unknown]
  - Palmar-plantar erythrodysaesthesia syndrome [Unknown]
  - Hypoaesthesia [Recovered/Resolved]
  - Limb discomfort [Recovered/Resolved]

NARRATIVE: CASE EVENT DATE: 20251028
